FAERS Safety Report 11243257 (Version 3)
Quarter: 2015Q4

REPORT INFORMATION
  Report Type: Spontaneous
  Country: FR (occurrence: FR)
  Receive Date: 20150707
  Receipt Date: 20151014
  Transmission Date: 20160304
  Serious: Yes (Other)
  Sender: FDA-Public Use
  Company Number: FR-BEH-2015052107

PATIENT
  Sex: Female

DRUGS (2)
  1. RHOPHYLAC [Suspect]
     Active Substance: HUMAN RHO(D) IMMUNE GLOBULIN
     Indication: PRODUCT USED FOR UNKNOWN INDICATION
     Dosage: PROBABLY SECOND INJECTION ON ??-???-2011
  2. RHOPHYLAC [Suspect]
     Active Substance: HUMAN RHO(D) IMMUNE GLOBULIN
     Dosage: FIRST INJECTION IN RIGHT BUTTOCK ON ??-???-2008

REACTIONS (5)
  - Lymphoid tissue hyperplasia [Unknown]
  - Wound secretion [Unknown]
  - Erythema [Unknown]
  - Prurigo [Unknown]
  - Dermatitis [Unknown]

NARRATIVE: CASE EVENT DATE: 2009
